FAERS Safety Report 21219471 (Version 3)
Quarter: 2023Q2

REPORT INFORMATION
  Report Type: Spontaneous
  Country: US (occurrence: US)
  Receive Date: 20220817
  Receipt Date: 20230427
  Transmission Date: 20230722
  Serious: No
  Sender: FDA-Public Use
  Company Number: US-LUPIN PHARMACEUTICALS INC.-2022-10219

PATIENT

DRUGS (2)
  1. ALBUTEROL SULFATE [Suspect]
     Active Substance: ALBUTEROL SULFATE
     Indication: Asthma
     Dosage: UNK, PRN (2 PUFFS EVERY 6 HOURS AS NEEDED)
     Dates: start: 202207
  2. ALBUTEROL SULFATE [Suspect]
     Active Substance: ALBUTEROL SULFATE
     Indication: Hypersensitivity

REACTIONS (3)
  - Wrong technique in device usage process [Unknown]
  - Off label use [Unknown]
  - Wrong technique in product usage process [Unknown]
